FAERS Safety Report 4401811-9 (Version None)
Quarter: 2004Q3

REPORT INFORMATION
  Report Type: 
  Country: None (occurrence: None)
  Receive Date: 20040714
  Receipt Date: 20040701
  Transmission Date: 20050211
  Serious: Yes (Hospitalization)
  Sender: FDA-Public Use
  Company Number: US-JNJFOC-20040701365

PATIENT
  Age: 91 Year
  Sex: Female

DRUGS (2)
  1. RISPERDAL [Suspect]
     Dosage: 0.25 MG, 2 IN 1 DAY, ORAL
     Route: 048
     Dates: start: 20040102, end: 20040114
  2. REMINYL [Concomitant]
     Indication: DEMENTIA

REACTIONS (2)
  - CONDITION AGGRAVATED [None]
  - DEMENTIA [None]
